FAERS Safety Report 20637385 (Version 17)
Quarter: 2023Q2

REPORT INFORMATION
  Report Type: Report from Study
  Country: US (occurrence: US)
  Receive Date: 20220325
  Receipt Date: 20230608
  Transmission Date: 20230721
  Serious: No
  Sender: FDA-Public Use
  Company Number: US-NOVARTISTESTPH-NVSC2022US068357

PATIENT
  Sex: Female
  Weight: 49.887 kg

DRUGS (11)
  1. TREPROSTINIL [Suspect]
     Active Substance: TREPROSTINIL
     Indication: Pulmonary arterial hypertension
     Dosage: UNK, 2 (NG/KG/MIN), CONT
     Route: 058
     Dates: start: 20220308
  2. TREPROSTINIL [Suspect]
     Active Substance: TREPROSTINIL
     Dosage: UNK, (40 NG/KG/MIN), CONT
     Route: 058
  3. TREPROSTINIL [Suspect]
     Active Substance: TREPROSTINIL
     Dosage: UNK, 26 NG/KG/MIN, CONT
     Route: 058
  4. TREPROSTINIL [Suspect]
     Active Substance: TREPROSTINIL
     Dosage: UNK, CONT (8 NG/KG/MIN)
     Route: 058
  5. TREPROSTINIL [Suspect]
     Active Substance: TREPROSTINIL
     Dosage: UNK, CONT (40 NG/KG/MIN)
     Route: 058
  6. TREPROSTINIL [Suspect]
     Active Substance: TREPROSTINIL
     Dosage: UNK (40 NG/KG/MIN), CONT
     Route: 058
  7. TREPROSTINIL [Suspect]
     Active Substance: TREPROSTINIL
     Dosage: 66 NG/KG/ MIN, CONT
     Route: 058
  8. TREPROSTINIL [Suspect]
     Active Substance: TREPROSTINIL
     Dosage: UNK (93 NG/KG/ MIN)
     Route: 058
  9. REMODULIN [Suspect]
     Active Substance: TREPROSTINIL
     Indication: Product used for unknown indication
     Dosage: UNK
     Route: 065
  10. AMBRISENTAN [Concomitant]
     Active Substance: AMBRISENTAN
     Indication: Product used for unknown indication
     Dosage: UNK
     Route: 065
  11. SILDENAFIL CITRATE [Concomitant]
     Active Substance: SILDENAFIL CITRATE
     Indication: Product used for unknown indication
     Dosage: UNK
     Route: 065

REACTIONS (19)
  - Pyrexia [Unknown]
  - Fluid retention [Unknown]
  - Dysgeusia [Unknown]
  - Device alarm issue [Unknown]
  - Needle issue [Unknown]
  - Malaise [Unknown]
  - Localised oedema [Unknown]
  - Fatigue [Unknown]
  - Headache [Unknown]
  - Asthenia [Unknown]
  - Dyspnoea [Unknown]
  - Vomiting [Unknown]
  - Diarrhoea [Unknown]
  - Injection site erythema [Unknown]
  - Administration site discomfort [Unknown]
  - Injection site pain [Not Recovered/Not Resolved]
  - Injection site haemorrhage [Unknown]
  - Thermal burn [Unknown]
  - Pruritus [Unknown]
